FAERS Safety Report 19318290 (Version 1)
Quarter: 2021Q2

REPORT INFORMATION
  Report Type: Spontaneous
  Country: US (occurrence: US)
  Receive Date: 20210527
  Receipt Date: 20210527
  Transmission Date: 20210717
  Serious: Yes (Other)
  Sender: FDA-Public Use
  Company Number: US-ABBVIE-21K-163-3917511-00

PATIENT
  Sex: Female

DRUGS (1)
  1. ORILISSA [Suspect]
     Active Substance: ELAGOLIX SODIUM
     Indication: ENDOMETRIOSIS
     Route: 048

REACTIONS (6)
  - Dyspareunia [Unknown]
  - Hot flush [Unknown]
  - Mood swings [Unknown]
  - Amenorrhoea [Unknown]
  - Laparoscopy [Unknown]
  - Nausea [Unknown]

NARRATIVE: CASE EVENT DATE: 202104
